FAERS Safety Report 8000170-2 (Version None)
Quarter: 2011Q4

REPORT INFORMATION
  Report Type: 
  Country: None (occurrence: None)
  Receive Date: 20111220
  Receipt Date: 20111220
  Transmission Date: 20120403
  Serious: Yes (Hospitalization)
  Sender: FDA-Public Use
  Company Number: None

PATIENT
  Sex: Male
  Weight: 90.7 kg

DRUGS (2)
  1. TAXOL [Suspect]
     Dosage: 545 MG
     Dates: end: 20111121
  2. CARBOPLATIN [Suspect]
     Dosage: 700 MG
     Dates: end: 20111121

REACTIONS (6)
  - DYSPNOEA [None]
  - PNEUMONIA [None]
  - ASTHENIA [None]
  - COUGH [None]
  - NERVOUS SYSTEM DISORDER [None]
  - BRAIN SCAN ABNORMAL [None]
